FAERS Safety Report 4889587-2 (Version None)
Quarter: 2006Q1

REPORT INFORMATION
  Report Type: 
  Country: None (occurrence: None)
  Receive Date: 20060120
  Receipt Date: 20051230
  Transmission Date: 20060701
  Serious: Yes (Hospitalization)
  Sender: FDA-Public Use
  Company Number: 20062722

PATIENT
  Sex: Female

DRUGS (1)
  1. LIORESAL INTRATHECAL (BACLOFEN INJECTION) 1400 MCG/ML [Suspect]
     Indication: MUSCLE SPASTICITY
     Dosage: MCG; DAILY, INTHRATHECAL
     Route: 037

REACTIONS (4)
  - AGITATION [None]
  - DRUG SCREEN POSITIVE [None]
  - DRUG WITHDRAWAL SYNDROME [None]
  - PARANOIA [None]
